FAERS Safety Report 21897196 (Version 1)
Quarter: 2023Q1

REPORT INFORMATION
  Report Type: Spontaneous
  Country: US (occurrence: None)
  Receive Date: 20230120
  Receipt Date: 20230120
  Transmission Date: 20230417
  Serious: No
  Sender: FDA-Public Use
  Company Number: None

PATIENT
  Sex: Male

DRUGS (1)
  1. REMICADE [Suspect]
     Active Substance: INFLIXIMAB
     Indication: Crohn^s disease
     Dosage: 10MG PER KG (1306MG) INTRAVENOUSLY OVER AT LEAST 2 HOURS, EVERY 8 WEEKS.??
     Route: 042
     Dates: start: 20210206

REACTIONS (1)
  - Drug ineffective [None]
